FAERS Safety Report 5396723-0 (Version None)
Quarter: 2007Q3

REPORT INFORMATION
  Report Type: 
  Country: None (occurrence: None)
  Receive Date: 20070725
  Receipt Date: 20070713
  Transmission Date: 20080115
  Serious: Yes (Other)
  Sender: FDA-Public Use
  Company Number: CI-GILEAD-2007-0012415

PATIENT
  Sex: Female
  Weight: 62 kg

DRUGS (8)
  1. EMTRICITABINE/TENOFOVIR DISOPROXIL FUMARATE [Suspect]
     Indication: HUMAN IMMUNODEFICIENCY VIRUS TRANSMISSION
     Dates: start: 20070129, end: 20070204
  2. EMTRICITABINE/TENOFOVIR DISOPROXIL FUMARATE [Suspect]
     Dates: start: 20070128, end: 20070128
  3. ZIDOVUDINE [Suspect]
     Indication: HUMAN IMMUNODEFICIENCY VIRUS TRANSMISSION
     Dates: start: 20061229, end: 20070127
  4. COTRIM [Suspect]
     Indication: OPPORTUNISTIC INFECTION PROPHYLAXIS
     Dates: start: 20060129
  5. NEVIRAPINE [Concomitant]
     Indication: HUMAN IMMUNODEFICIENCY VIRUS TRANSMISSION
     Dates: start: 20070128, end: 20070128
  6. AMOXICILLIN [Concomitant]
     Indication: INFECTION PROPHYLAXIS
     Dates: start: 20070129, end: 20070204
  7. IRON AND FOLIC ACID [Concomitant]
     Indication: ANAEMIA PROPHYLAXIS
     Dates: start: 20061229
  8. MULTI-VITAMIN [Concomitant]
     Indication: VITAMIN SUPPLEMENTATION
     Dates: start: 20061229

REACTIONS (3)
  - LEUKOPENIA [None]
  - NEUTROPENIA [None]
  - PREGNANCY [None]
